FAERS Safety Report 13429009 (Version 2)
Quarter: 2017Q2

REPORT INFORMATION
  Report Type: Spontaneous
  Country: US (occurrence: US)
  Receive Date: 20170411
  Receipt Date: 20170420
  Transmission Date: 20170830
  Serious: Yes (Other)
  Sender: FDA-Public Use
  Company Number: US-PFIZER INC-2017153516

PATIENT
  Age: 8 Decade
  Sex: Male

DRUGS (3)
  1. GEMCITABINE HYDROCHLORIDE. [Suspect]
     Active Substance: GEMCITABINE HYDROCHLORIDE
     Indication: METASTATIC CARCINOMA OF THE BLADDER
     Dosage: UNK
     Dates: start: 2015
  2. XTANDI [Suspect]
     Active Substance: ENZALUTAMIDE
     Indication: METASTATIC CARCINOMA OF THE BLADDER
     Dosage: UNK
     Dates: start: 2015
  3. CISPLATINUM [Suspect]
     Active Substance: CISPLATIN
     Indication: METASTATIC CARCINOMA OF THE BLADDER
     Dosage: UNK
     Dates: start: 2015

REACTIONS (2)
  - Bladder obstruction [Unknown]
  - Blood creatinine increased [Unknown]
